FAERS Safety Report 5549428-7 (Version None)
Quarter: 2007Q4

REPORT INFORMATION
  Report Type: 
  Country: None (occurrence: None)
  Receive Date: 20071212
  Receipt Date: 20070516
  Transmission Date: 20080405
  Serious: No
  Sender: FDA-Public Use
  Company Number: US-AMGEN-KDL225191

PATIENT
  Sex: Male

DRUGS (1)
  1. ENBREL [Suspect]
     Indication: PSORIASIS
     Route: 058
     Dates: start: 20051001

REACTIONS (4)
  - BACK PAIN [None]
  - INTERVERTEBRAL DISC PROTRUSION [None]
  - SCOLIOSIS [None]
  - SPINAL COLUMN STENOSIS [None]
